FAERS Safety Report 10549306 (Version 1)
Quarter: 2014Q4

REPORT INFORMATION
  Report Type: Spontaneous
  Country: US (occurrence: None)
  Receive Date: 20141015
  Receipt Date: 20141015
  Transmission Date: 20150529
  Serious: Yes (Hospitalization)
  Sender: FDA-Public Use
  Company Number: 2014US003558

PATIENT
  Age: 65 Year
  Sex: Male
  Weight: 79 kg

DRUGS (4)
  1. PREDNISONE. [Concomitant]
     Active Substance: PREDNISONE
  2. LISINOPRIL. [Concomitant]
     Active Substance: LISINOPRIL
  3. ICLUSIG [Suspect]
     Active Substance: PONATINIB
     Indication: CHRONIC MYELOID LEUKAEMIA
     Route: 048
  4. PRAVACHO [Concomitant]

REACTIONS (1)
  - Dry skin [None]
